FAERS Safety Report 8297398-3 (Version None)
Quarter: 2012Q2

REPORT INFORMATION
  Report Type: 
  Country: None (occurrence: None)
  Receive Date: 20120417
  Receipt Date: 20120402
  Transmission Date: 20120825
  Serious: Yes (Death)
  Sender: FDA-Public Use
  Company Number: UTC-017295

PATIENT
  Age: 3 Year
  Sex: Female
  Weight: 10 kg

DRUGS (5)
  1. REMODULIN [Suspect]
     Indication: COR PULMONALE CHRONIC
     Dosage: 93.6 UG/KG (0.065 UG/KG, 1 IN 1 MIN),INTRAVENOSUS
     Route: 042
     Dates: start: 20090324
  2. ASPIRIN [Concomitant]
  3. REVATIO [Concomitant]
  4. MILRINONE LACTATE [Suspect]
  5. DIURETICS (DIURETICS) [Concomitant]

REACTIONS (1)
  - DEATH [None]
